FAERS Safety Report 9665068 (Version 1)
Quarter: 2013Q4

REPORT INFORMATION
  Report Type: Spontaneous
  Country: US (occurrence: US)
  Receive Date: 20131101
  Receipt Date: 20131101
  Transmission Date: 20140711
  Serious: No
  Sender: FDA-Public Use
  Company Number: US-TEVA-437904USA

PATIENT
  Sex: Female

DRUGS (1)
  1. QVAR [Suspect]
     Dosage: 160 MILLIGRAM DAILY;
     Route: 045
     Dates: start: 201308, end: 20130905

REACTIONS (3)
  - Aggression [Recovered/Resolved]
  - Personality change [Recovered/Resolved]
  - Anger [Recovered/Resolved]
